FAERS Safety Report 9665750 (Version 1)
Quarter: 2013Q4

REPORT INFORMATION
  Report Type: Spontaneous
  Country: US (occurrence: None)
  Receive Date: 20131031
  Receipt Date: 20131031
  Transmission Date: 20140711
  Serious: No
  Sender: FDA-Public Use
  Company Number: None

PATIENT
  Age: 27 Year
  Sex: Female
  Weight: 104.33 kg

DRUGS (1)
  1. BELLA VI INSAINE AMPD [Suspect]
     Indication: WEIGHT CONTROL
     Dates: start: 20130810, end: 20130831

REACTIONS (3)
  - Dizziness [None]
  - Tremor [None]
  - Impaired work ability [None]
